FAERS Safety Report 7321408-0 (Version None)
Quarter: 2011Q1

REPORT INFORMATION
  Report Type: 
  Country: None (occurrence: None)
  Receive Date: 20110228
  Receipt Date: 20100610
  Transmission Date: 20110831
  Serious: Yes (Other)
  Sender: FDA-Public Use
  Company Number: US-PFIZER INC-2010072273

PATIENT
  Age: 60 Year
  Sex: Female

DRUGS (2)
  1. GEODON [Suspect]
     Dosage: 80 MG, 1X/DAY AT BEDTIME
     Dates: start: 20090801
  2. CLOZAPINE [Suspect]
     Dosage: 200 MG, 1X/DAY AT BEDTIME
     Dates: start: 20090901, end: 20100101

REACTIONS (1)
  - AGRANULOCYTOSIS [None]
